FAERS Safety Report 9783966 (Version 2)
Quarter: 2014Q1

REPORT INFORMATION
  Report Type: Spontaneous
  Country: RU (occurrence: RU)
  Receive Date: 20131226
  Receipt Date: 20140210
  Transmission Date: 20141002
  Serious: Yes (Hospitalization)
  Sender: FDA-Public Use
  Company Number: RU-PFIZER INC-2013363101

PATIENT
  Age: 48 Year
  Sex: Male

DRUGS (1)
  1. SUTENT [Suspect]
     Indication: METASTATIC RENAL CELL CARCINOMA
     Dosage: 50 MG, CYCLIC, 1 X/DAY FOR 4 WEEKS/2 WEEKS OFF
     Route: 048
     Dates: start: 2013

REACTIONS (2)
  - Arthritis [Recovered/Resolved]
  - Periodontitis [Recovered/Resolved]
